FAERS Safety Report 8506294-5 (Version None)
Quarter: 2012Q3

REPORT INFORMATION
  Report Type: 
  Country: None (occurrence: None)
  Receive Date: 20120712
  Receipt Date: 20120706
  Transmission Date: 20120928
  Serious: Yes (Death)
  Sender: FDA-Public Use
  Company Number: JP-ROCHE-1086142

PATIENT
  Sex: Male

DRUGS (23)
  1. CARVEDILOL [Concomitant]
     Indication: PROPHYLAXIS
     Route: 048
  2. METHOTREXATE [Concomitant]
     Indication: RHEUMATOID ARTHRITIS
     Route: 048
  3. PROGRAF [Concomitant]
     Indication: RHEUMATOID ARTHRITIS
     Route: 048
  4. ONEALFA [Concomitant]
     Indication: PROPHYLAXIS
     Route: 048
  5. MAGMITT [Concomitant]
     Route: 048
     Dates: start: 20100531
  6. PREDNISOLONE [Concomitant]
     Indication: RHEUMATOID ARTHRITIS
     Dosage: 4-10MG
     Route: 048
  7. LIPITOR [Concomitant]
     Indication: HYPERCHOLESTEROLAEMIA
     Route: 048
  8. CELEBREX [Concomitant]
     Indication: RHEUMATOID ARTHRITIS
     Route: 048
     Dates: start: 20090618
  9. LEVEMIR [Concomitant]
     Indication: DIABETES MELLITUS
     Route: 058
  10. METFORMIN HCL [Concomitant]
     Indication: DIABETES MELLITUS
     Route: 048
  11. INNOLET 30R [Concomitant]
     Indication: DIABETES MELLITUS
     Route: 058
  12. ACTEMRA [Suspect]
     Route: 041
     Dates: start: 20091211, end: 20100312
  13. SUCRALFATE [Concomitant]
     Indication: PROPHYLAXIS
     Route: 048
     Dates: start: 20100531
  14. NOVORAPID [Concomitant]
     Indication: DIABETES MELLITUS
     Route: 058
  15. RISEDRONATE SODIUM [Concomitant]
     Route: 048
  16. INNOLET N [Concomitant]
     Indication: DIABETES MELLITUS
     Route: 058
  17. JANUVIA [Concomitant]
     Indication: DIABETES MELLITUS
     Route: 048
     Dates: start: 20120203
  18. LOSARTAN POTASSIUM [Concomitant]
     Indication: HYPERTENSION
     Route: 048
  19. ACTEMRA [Suspect]
     Indication: RHEUMATOID ARTHRITIS
     Route: 041
     Dates: start: 20090615, end: 20091120
  20. FAMOTIDINE [Concomitant]
     Indication: PROPHYLAXIS
     Route: 048
  21. FOLIAMIN [Concomitant]
     Indication: PROPHYLAXIS
     Route: 048
  22. ASPIRIN [Concomitant]
     Indication: MYOCARDIAL INFARCTION
     Route: 048
  23. LANSOPRAZOLE [Concomitant]
     Indication: PROPHYLAXIS
     Route: 048
     Dates: start: 20100531

REACTIONS (1)
  - DEATH [None]
